FAERS Safety Report 8460146-8 (Version None)
Quarter: 2012Q2

REPORT INFORMATION
  Report Type: 
  Country: None (occurrence: None)
  Receive Date: 20120323
  Receipt Date: 20110928
  Transmission Date: 20120825
  Serious: Yes (Other)
  Sender: FDA-Public Use
  Company Number: 163-21880-11091365

PATIENT
  Age: 76 Year
  Sex: Female
  Weight: 95.2554 kg

DRUGS (12)
  1. ZOMETA [Concomitant]
  2. REVLIMID [Suspect]
     Indication: MULTIPLE MYELOMA
     Dosage: 15 MG, DAILY FOR 21 DAYS, OFF 7 DAYS, PO
     Route: 048
     Dates: start: 20110801, end: 20110901
  3. ANTIBIOTICS (ANTIBIOTICS) [Concomitant]
  4. FISH OIL (FISH OIL) [Concomitant]
  5. SODIUM CHLORIDE [Concomitant]
  6. MULTIVITAMIN [Concomitant]
  7. ACETAMINOPHEN W/ PROPOXYPHENE HCL [Concomitant]
  8. FLAXSEED OIL (LINSEED OIL) [Concomitant]
  9. TIOTROPIUM BROMIDE (TIOTROPIUM BROMIDE) [Concomitant]
  10. VITAMIN E [Concomitant]
  11. VICODIN [Concomitant]
  12. FLUTICASONE PROPIONATE [Concomitant]

REACTIONS (2)
  - RASH PRURITIC [None]
  - HYPERSENSITIVITY [None]
